FAERS Safety Report 8328599-3 (Version None)
Quarter: 2012Q2

REPORT INFORMATION
  Report Type: 
  Country: None (occurrence: None)
  Receive Date: 20120430
  Receipt Date: 20120412
  Transmission Date: 20120825
  Serious: Yes (Hospitalization, Disabling, Other)
  Sender: FDA-Public Use
  Company Number: 2012MA005033

PATIENT
  Age: 52 Year
  Sex: Male

DRUGS (3)
  1. GEMCITABINE HYDROCHLORIDE [Suspect]
     Indication: ADENOCARCINOMA
     Dosage: 1000 MG/M**2;IV
     Route: 042
  2. METHYLPREDNISOLONE [Concomitant]
  3. ERLOTINIB HYDROCHLORIDE [Concomitant]

REACTIONS (9)
  - POLYMYOSITIS [None]
  - BLOOD CREATINE PHOSPHOKINASE INCREASED [None]
  - BLOOD LACTATE DEHYDROGENASE INCREASED [None]
  - ALANINE AMINOTRANSFERASE INCREASED [None]
  - OEDEMA PERIPHERAL [None]
  - ASPARTATE AMINOTRANSFERASE INCREASED [None]
  - PANCREATIC CARCINOMA [None]
  - C-REACTIVE PROTEIN INCREASED [None]
  - NEOPLASM PROGRESSION [None]
